FAERS Safety Report 14324556 (Version 5)
Quarter: 2021Q1

REPORT INFORMATION
  Report Type: Report from Study
  Country: FR (occurrence: FR)
  Receive Date: 20171226
  Receipt Date: 20210325
  Transmission Date: 20210419
  Serious: Yes (Other)
  Sender: FDA-Public Use
  Company Number: FR-BRISTOL-MYERS SQUIBB COMPANY-BMS-2017-100457

PATIENT
  Age: 75 Year
  Sex: Male

DRUGS (1)
  1. NIVOLUMAB [Suspect]
     Active Substance: NIVOLUMAB
     Indication: LUNG NEOPLASM MALIGNANT
     Dosage: 250 MG, Q2WK
     Route: 042
     Dates: start: 20171017, end: 20171226

REACTIONS (5)
  - Diarrhoea [Recovered/Resolved]
  - Malignant neoplasm progression [Not Recovered/Not Resolved]
  - Rales [Recovered/Resolved]
  - Insomnia [Not Recovered/Not Resolved]
  - Vomiting [Recovered/Resolved]

NARRATIVE: CASE EVENT DATE: 20171031
